FAERS Safety Report 11921400 (Version 3)
Quarter: 2017Q3

REPORT INFORMATION
  Report Type: Spontaneous
  Country: JP (occurrence: JP)
  Receive Date: 20160115
  Receipt Date: 20170710
  Transmission Date: 20171127
  Serious: Yes (Hospitalization)
  Sender: FDA-Public Use
  Company Number: JP-GLAXOSMITHKLINE-JP2016JPN001151

PATIENT
  Age: 64 Year
  Sex: Male
  Weight: 73 kg

DRUGS (18)
  1. ZANTAC [Suspect]
     Active Substance: RANITIDINE HYDROCHLORIDE
     Dosage: UNK
     Route: 041
     Dates: start: 20151001, end: 20151001
  2. ZANTAC [Suspect]
     Active Substance: RANITIDINE HYDROCHLORIDE
     Dosage: UNK
     Route: 041
     Dates: start: 20151008, end: 20151008
  3. POLARAMINE [Concomitant]
     Active Substance: DEXCHLORPHENIRAMINE MALEATE
     Dosage: UNK
     Dates: start: 20151008, end: 20151008
  4. LIXIANA [Concomitant]
     Active Substance: EDOXABAN TOSYLATE
     Dosage: 60 MG, 1D
  5. BARACLUDE TABLETS [Concomitant]
     Dosage: 0.5 MG, 1D
  6. SEROTONE [Concomitant]
     Active Substance: AZASETRON HYDROCHLORIDE
     Indication: PREMEDICATION
     Dosage: 10 MG, QD
     Route: 042
     Dates: start: 20150924, end: 20150924
  7. TAKECAB TABLETS [Concomitant]
     Dosage: 20 MG, 1D
  8. POLARAMINE [Concomitant]
     Active Substance: DEXCHLORPHENIRAMINE MALEATE
     Indication: PREMEDICATION
     Dosage: 10 MG, QD
     Route: 042
     Dates: start: 20150924, end: 20150924
  9. POLARAMINE [Concomitant]
     Active Substance: DEXCHLORPHENIRAMINE MALEATE
     Dosage: UNK
     Dates: start: 20151001, end: 20151001
  10. SEROTONE [Concomitant]
     Active Substance: AZASETRON HYDROCHLORIDE
     Dosage: UNK
     Dates: start: 20151001, end: 20151001
  11. DECADRON [Concomitant]
     Active Substance: DEXAMETHASONE
     Dosage: 2.0 MG, 1D
  12. DEXART [Concomitant]
     Active Substance: DEXAMETHASONE SODIUM PHOSPHATE
     Indication: PREMEDICATION
     Dosage: 6.6 MG, QD
     Route: 042
     Dates: start: 20150924, end: 20150924
  13. DEXART [Concomitant]
     Active Substance: DEXAMETHASONE SODIUM PHOSPHATE
     Dosage: UNK
     Dates: start: 20151001, end: 20151001
  14. DEXART [Concomitant]
     Active Substance: DEXAMETHASONE SODIUM PHOSPHATE
     Dosage: UNK
     Dates: start: 20151008, end: 20151008
  15. SEROTONE [Concomitant]
     Active Substance: AZASETRON HYDROCHLORIDE
     Dosage: UNK
     Dates: start: 20151008, end: 20151008
  16. ZANTAC [Suspect]
     Active Substance: RANITIDINE HYDROCHLORIDE
     Indication: PREMEDICATION
     Dosage: 100 MG, QD
     Route: 041
     Dates: start: 20150924, end: 20150924
  17. VENA [Concomitant]
     Active Substance: DIPHENHYDRAMINE HYDROCHLORIDE
     Dosage: 50 MG, 1D
  18. CYMBALTA [Concomitant]
     Active Substance: DULOXETINE HYDROCHLORIDE
     Dosage: 20 MG, 1D

REACTIONS (14)
  - Vomiting [Recovered/Resolved]
  - Pyrexia [Recovered/Resolved]
  - Feeling abnormal [Recovered/Resolved]
  - Chest discomfort [Recovered/Resolved]
  - Blood pressure decreased [Recovered/Resolved]
  - Pallor [Recovered/Resolved]
  - Dyspnoea [Recovered/Resolved]
  - Flushing [Recovered/Resolved]
  - Feeling abnormal [Recovered/Resolved]
  - Chills [Recovered/Resolved]
  - Dyspnoea [Recovered/Resolved]
  - Hyperhidrosis [Recovered/Resolved]
  - Oxygen saturation decreased [Recovered/Resolved]
  - Off label use [Unknown]

NARRATIVE: CASE EVENT DATE: 20150924
